FAERS Safety Report 15154466 (Version 1)
Quarter: 2018Q3

REPORT INFORMATION
  Report Type: Spontaneous
  Country: DE (occurrence: DE)
  Receive Date: 20180717
  Receipt Date: 20180717
  Transmission Date: 20181010
  Serious: Yes (Other)
  Sender: FDA-Public Use
  Company Number: DE-MYLANLABS-2018M1050477

PATIENT
  Sex: Female

DRUGS (9)
  1. MAXIM                              /01257001/ [Interacting]
     Active Substance: DIENOGEST\ETHINYL ESTRADIOL
     Indication: PRODUCT USED FOR UNKNOWN INDICATION
     Dosage: UNK
     Route: 048
  2. LEVETIRACETAM. [Interacting]
     Active Substance: LEVETIRACETAM
     Indication: EPILEPSY
     Dosage: UNK
  3. PREDNISOLON                        /00016201/ [Interacting]
     Active Substance: PREDNISOLONE
     Indication: NONINFECTIVE ENCEPHALITIS
     Dosage: UNK
  4. RANITIDINE. [Suspect]
     Active Substance: RANITIDINE
     Indication: NONINFECTIVE ENCEPHALITIS
     Dosage: UNK
  5. METHOTREXATE. [Interacting]
     Active Substance: METHOTREXATE
     Indication: NONINFECTIVE ENCEPHALITIS
     Dosage: UNK
  6. FOLIC ACID. [Interacting]
     Active Substance: FOLIC ACID
     Indication: NONINFECTIVE ENCEPHALITIS
     Dosage: UNK
  7. L?THYROXIN                         /00068001/ [Interacting]
     Active Substance: LEVOTHYROXINE
     Indication: THYROID OPERATION
     Dosage: UNK
  8. MAGNESIUM [Interacting]
     Active Substance: MAGNESIUM
     Indication: NONINFECTIVE ENCEPHALITIS
     Dosage: UNK
  9. DEKRISTOL [Interacting]
     Active Substance: CHOLECALCIFEROL
     Indication: NONINFECTIVE ENCEPHALITIS
     Dosage: UNK

REACTIONS (3)
  - Epilepsy [Unknown]
  - Drug interaction [Unknown]
  - Noninfective encephalitis [Unknown]

NARRATIVE: CASE EVENT DATE: 201712
